FAERS Safety Report 15263796 (Version 2)
Quarter: 2018Q3

REPORT INFORMATION
  Report Type: Report from Study
  Country: US (occurrence: US)
  Receive Date: 20180810
  Receipt Date: 20180917
  Transmission Date: 20181010
  Serious: No
  Sender: FDA-Public Use
  Company Number: US-SHIRE-US180700001

PATIENT
  Sex: Male

DRUGS (2)
  1. ELAPRASE [Suspect]
     Active Substance: IDURSULFASE
     Indication: MUCOPOLYSACCHARIDOSIS II
     Dosage: UNK, 1X/WEEK
     Route: 042
     Dates: start: 20070523
  2. ELAPRASE [Suspect]
     Active Substance: IDURSULFASE
     Dosage: 5 VIALS, UNK
     Route: 042
     Dates: start: 20180523

REACTIONS (2)
  - Ligament disorder [Unknown]
  - Arthropathy [Unknown]
